FAERS Safety Report 14572161 (Version 1)
Quarter: 2018Q1

REPORT INFORMATION
  Report Type: Spontaneous
  Country: SK (occurrence: SK)
  Receive Date: 20180226
  Receipt Date: 20180226
  Transmission Date: 20180509
  Serious: Yes (Hospitalization)
  Sender: FDA-Public Use
  Company Number: SK-MYLANLABS-2018M1012150

PATIENT
  Age: 39 Year
  Sex: Female

DRUGS (6)
  1. LEPONEX [Suspect]
     Active Substance: CLOZAPINE
     Dosage: 50 MG, NOON
  2. ESCITALOPRAM [Concomitant]
     Active Substance: ESCITALOPRAM OXALATE
     Indication: PRODUCT USED FOR UNKNOWN INDICATION
     Dosage: 10 MG, AM
  3. STILNOX [Concomitant]
     Active Substance: ZOLPIDEM TARTRATE
     Indication: INSOMNIA
     Dosage: UNK, HS
  4. LEPONEX [Suspect]
     Active Substance: CLOZAPINE
     Dosage: 50 MG, AM
  5. LEPONEX [Suspect]
     Active Substance: CLOZAPINE
     Indication: SCHIZOPHRENIA
     Dosage: 100 MG, TID
  6. ESCITALOPRAM [Concomitant]
     Active Substance: ESCITALOPRAM OXALATE
     Dosage: 10 MG, NOON

REACTIONS (4)
  - Obsessive-compulsive symptom [Recovered/Resolved]
  - Memory impairment [Unknown]
  - Schizophrenia [Unknown]
  - Social avoidant behaviour [Unknown]
